FAERS Safety Report 9659629 (Version 4)
Quarter: 2014Q1

REPORT INFORMATION
  Report Type: Spontaneous
  Country: US (occurrence: US)
  Receive Date: 20131031
  Receipt Date: 20140107
  Transmission Date: 20141002
  Serious: Yes (Other)
  Sender: FDA-Public Use
  Company Number: US-MYLANLABS-2013S1023858

PATIENT
  Sex: Female
  Weight: 97.98 kg

DRUGS (11)
  1. FLUPHENAZINE HYDROCHLORIDE TABLETS, USP [Suspect]
     Indication: AFFECTIVE DISORDER
     Route: 048
     Dates: end: 20131002
  2. FLUPHENAZINE HYDROCHLORIDE TABLETS, USP [Suspect]
     Indication: INSOMNIA
     Route: 048
     Dates: end: 20131002
  3. TRAZODONE [Suspect]
     Indication: AFFECTIVE DISORDER
     Route: 048
     Dates: end: 20131002
  4. DEPAKOTE [Suspect]
     Indication: AFFECTIVE DISORDER
  5. HYDROXYZINE [Suspect]
     Indication: AFFECTIVE DISORDER
     Route: 048
     Dates: start: 201308, end: 20131002
  6. HALDOL [Suspect]
  7. COGENTIN [Suspect]
  8. SAPHRIS [Suspect]
  9. LEVOTHYROXINE [Concomitant]
  10. FLUPHENAZINE DECANOATE [Concomitant]
     Dosage: 25MG/ML
  11. BENZTROPINE [Concomitant]

REACTIONS (24)
  - Convulsion [Recovered/Resolved]
  - Delusional perception [Recovered/Resolved]
  - Fear [Recovered/Resolved]
  - Anxiety [Recovered/Resolved]
  - Fear [Recovered/Resolved]
  - Nervousness [Recovered/Resolved]
  - Negative thoughts [Recovered/Resolved]
  - Dissociation [Recovered/Resolved]
  - Disturbance in attention [Recovered/Resolved]
  - Illusion [Recovered/Resolved]
  - Eye movement disorder [Recovered/Resolved]
  - Flat affect [Recovered/Resolved]
  - Poor quality sleep [Recovered/Resolved]
  - Visual impairment [Recovered/Resolved]
  - Visual acuity reduced [Recovered/Resolved]
  - Eye movement disorder [Recovered/Resolved]
  - Abnormal behaviour [Recovered/Resolved]
  - Blepharospasm [Recovered/Resolved]
  - Muscle twitching [Recovered/Resolved]
  - Photophobia [Recovered/Resolved]
  - Eating disorder [Recovered/Resolved]
  - Psychomotor hyperactivity [Recovered/Resolved]
  - Dysgraphia [Recovered/Resolved]
  - Unevaluable event [Recovered/Resolved]
